FAERS Safety Report 13835380 (Version 1)
Quarter: 2017Q3

REPORT INFORMATION
  Report Type: Spontaneous
  Country: US (occurrence: US)
  Receive Date: 20170804
  Receipt Date: 20170804
  Transmission Date: 20171127
  Serious: Yes (Other)
  Sender: FDA-Public Use
  Company Number: US-FRESENIUS KABI-FK201706631

PATIENT
  Age: 46 Year
  Sex: Female

DRUGS (5)
  1. MYCOPHENOLATE [Suspect]
     Active Substance: MYCOPHENOLIC ACID
     Indication: PAROPHTHALMIA
     Route: 065
  2. DAPSONE. [Suspect]
     Active Substance: DAPSONE
     Indication: PAROPHTHALMIA
     Route: 065
  3. METHOTREXATE (MANUFACTURER UNKNOWN) [Suspect]
     Active Substance: METHOTREXATE
     Indication: PAROPHTHALMIA
     Route: 065
  4. PREDNISONE. [Suspect]
     Active Substance: PREDNISONE
     Indication: PAROPHTHALMIA
     Route: 065
  5. ADALIMUMAB [Suspect]
     Active Substance: ADALIMUMAB
     Indication: PAROPHTHALMIA
     Route: 065

REACTIONS (5)
  - Hypertension [Recovered/Resolved]
  - Weight increased [Recovered/Resolved]
  - Non-alcoholic fatty liver [Recovered/Resolved]
  - Diabetes mellitus [Recovered/Resolved]
  - Gastrooesophageal reflux disease [Recovered/Resolved]
